FAERS Safety Report 9118291 (Version 1)
Quarter: 2013Q1

REPORT INFORMATION
  Report Type: Spontaneous
  Country: US (occurrence: None)
  Receive Date: 20130221
  Receipt Date: 20130221
  Transmission Date: 20140127
  Serious: Yes (Hospitalization)
  Sender: FDA-Public Use
  Company Number: None

PATIENT
  Age: 75 Year
  Sex: Female
  Weight: 64.41 kg

DRUGS (2)
  1. ONGLYZA [Suspect]
     Dosage: 2.5 MG ONCE A DAY
  2. KOMBIGLYZE XR [Suspect]
     Dosage: SMALLEST AMT. AVIL. ONCE A DAY
     Dates: start: 20120905

REACTIONS (10)
  - Pain [None]
  - Muscle disorder [None]
  - Gait disturbance [None]
  - Feeling cold [None]
  - Palpitations [None]
  - Dehydration [None]
  - Visual impairment [None]
  - Headache [None]
  - Euphoric mood [None]
  - Insomnia [None]
